FAERS Safety Report 26135450 (Version 1)
Quarter: 2025Q4

REPORT INFORMATION
  Report Type: Spontaneous
  Country: US (occurrence: US)
  Receive Date: 20251209
  Receipt Date: 20251209
  Transmission Date: 20260117
  Serious: No
  Sender: NOVEN
  Company Number: US-NOVEN PHARMACEUTICALS, INC.-2025-NOV-US001513

PATIENT
  Age: 52 Year
  Sex: Female

DRUGS (2)
  1. MINIVELLE [Suspect]
     Active Substance: ESTRADIOL
     Indication: Product used for unknown indication
     Dosage: 0.1 MG, UNK
     Route: 062
  2. MINIVELLE [Suspect]
     Active Substance: ESTRADIOL
     Dosage: UNKNOWN
     Route: 062

REACTIONS (9)
  - Device difficult to use [Unknown]
  - Adhesive tape use [Unknown]
  - Wrong technique in product usage process [Unknown]
  - Product administered at inappropriate site [Not Recovered/Not Resolved]
  - Intentional dose omission [Not Recovered/Not Resolved]
  - Inappropriate schedule of product administration [Not Recovered/Not Resolved]
  - Product adhesion issue [Unknown]
  - Device issue [Not Recovered/Not Resolved]
  - No adverse event [Unknown]
